FAERS Safety Report 11290948 (Version 1)
Quarter: 2015Q3

REPORT INFORMATION
  Report Type: Spontaneous
  Country: IT (occurrence: None)
  Receive Date: 20150720
  Receipt Date: 20150720
  Transmission Date: 20151125
  Serious: Yes (Hospitalization)
  Sender: FDA-Public Use
  Company Number: 2015IT0177

PATIENT
  Age: 27 Year
  Sex: Female

DRUGS (4)
  1. LYRICA [Concomitant]
     Active Substance: PREGABALIN
  2. MEDROL [Concomitant]
     Active Substance: METHYLPREDNISOLONE
  3. LANSOX (LANSOPRAZOLE) [Concomitant]
     Active Substance: LANSOPRAZOLE
  4. KINERET [Suspect]
     Active Substance: ANAKINRA
     Indication: BEHCET^S SYNDROME
     Route: 058

REACTIONS (6)
  - Off label use [None]
  - Mouth swelling [None]
  - Pharyngeal oedema [None]
  - Dyspnoea [None]
  - Injection site reaction [None]
  - Oedema mucosal [None]

NARRATIVE: CASE EVENT DATE: 20140801
